FAERS Safety Report 9496760 (Version 1)
Quarter: 2013Q3

REPORT INFORMATION
  Report Type: Spontaneous
  Country: BR (occurrence: BR)
  Receive Date: 20130904
  Receipt Date: 20130904
  Transmission Date: 20140515
  Serious: Yes (Hospitalization, Other)
  Sender: FDA-Public Use
  Company Number: BR-PFIZER INC-2013253216

PATIENT
  Age: 75 Year
  Sex: Male

DRUGS (5)
  1. LYRICA [Suspect]
     Indication: INFLAMMATION
     Dosage: 75 MG (ONE ^TABLET^), 1X/DAY
     Route: 048
  2. ATENOLOL [Concomitant]
     Dosage: UNK
  3. CRESTOR [Concomitant]
     Indication: BLOOD CHOLESTEROL
     Dosage: UNK
  4. DIGOXINE [Concomitant]
     Indication: PERIPHERAL VASCULAR DISORDER
     Dosage: UNK
  5. GLIFAGE [Concomitant]
     Indication: DIABETES MELLITUS
     Dosage: UNK

REACTIONS (4)
  - Off label use [Unknown]
  - Angiopathy [Unknown]
  - Cataract [Unknown]
  - Pain in extremity [Not Recovered/Not Resolved]
